FAERS Safety Report 21909244 (Version 1)
Quarter: 2023Q1

REPORT INFORMATION
  Report Type: Report from Study
  Country: US (occurrence: US)
  Receive Date: 20230125
  Receipt Date: 20230125
  Transmission Date: 20230417
  Serious: Yes (Other)
  Sender: FDA-Public Use
  Company Number: US-ABBVIE-4279064

PATIENT
  Age: 74 Year
  Sex: Male

DRUGS (8)
  1. IMBRUVICA [Suspect]
     Active Substance: IBRUTINIB
     Indication: Chronic lymphocytic leukaemia
     Route: 048
  2. METOPROLOL [Concomitant]
     Active Substance: METOPROLOL
     Indication: Product used for unknown indication
  3. OMEPRAZOLE [Concomitant]
     Active Substance: OMEPRAZOLE
     Indication: Product used for unknown indication
  4. Allopurinol Oral Tablet 300 MG [Concomitant]
     Indication: Product used for unknown indication
  5. Eliquis Oral Tablet 5 MG [Concomitant]
     Indication: Product used for unknown indication
  6. Valsartan Oral Tablet 160 MG [Concomitant]
     Indication: Product used for unknown indication
  7. Atorvastatin Calcium Oral Tablet 80mg [Concomitant]
     Indication: Product used for unknown indication
  8. Amiodarone HCl Oral Tablet 100 MG [Concomitant]
     Indication: Product used for unknown indication

REACTIONS (3)
  - Cardiac ablation [Unknown]
  - Contusion [Unknown]
  - Post procedural haemorrhage [Unknown]

NARRATIVE: CASE EVENT DATE: 20230101
